FAERS Safety Report 7561595-2 (Version None)
Quarter: 2011Q2

REPORT INFORMATION
  Report Type: 
  Country: None (occurrence: None)
  Receive Date: 20110621
  Receipt Date: 20101203
  Transmission Date: 20111010
  Serious: No
  Sender: FDA-Public Use
  Company Number: US-ASTRAZENECA-2010SE57537

PATIENT
  Age: 67 Year
  Sex: Female

DRUGS (1)
  1. PULMICORT FLEXHALER [Suspect]
     Dosage: 1 PUFF DAILY
     Route: 055
     Dates: start: 20100701

REACTIONS (2)
  - DYSGEUSIA [None]
  - DRUG DOSE OMISSION [None]
